FAERS Safety Report 6726589-5 (Version None)
Quarter: 2010Q2

REPORT INFORMATION
  Report Type: 
  Country: None (occurrence: None)
  Receive Date: 20100514
  Receipt Date: 20100504
  Transmission Date: 20101027
  Serious: No
  Sender: FDA-Public Use
  Company Number: AU-ELI_LILLY_AND_COMPANY-AU201005000349

PATIENT
  Age: 66 Year
  Sex: Female

DRUGS (5)
  1. CYMBALTA [Suspect]
     Dosage: 60 MG, UNKNOWN
     Route: 065
  2. CYMBALTA [Suspect]
     Dosage: 30 MG, UNKNOWN
     Route: 065
  3. NEXIUM [Concomitant]
     Dosage: UNK, UNKNOWN
     Route: 065
  4. XANAX [Concomitant]
     Dosage: UNK, UNKNOWN
     Route: 065
  5. VITAMINS [Concomitant]
     Dosage: UNK, UNKNOWN
     Route: 065

REACTIONS (7)
  - BLOOD PRESSURE INCREASED [None]
  - DIARRHOEA [None]
  - DIZZINESS [None]
  - HEADACHE [None]
  - HYPOAESTHESIA [None]
  - LIVER FUNCTION TEST ABNORMAL [None]
  - TINNITUS [None]
